FAERS Safety Report 5560918-3 (Version None)
Quarter: 2007Q4

REPORT INFORMATION
  Report Type: 
  Country: None (occurrence: None)
  Receive Date: 20071215
  Receipt Date: 20071129
  Transmission Date: 20080405
  Serious: No
  Sender: FDA-Public Use
  Company Number: US-ABBOTT-07P-163-0427156-00

PATIENT
  Age: 44 Year
  Sex: Female

DRUGS (2)
  1. HUMIRA [Suspect]
     Indication: RHEUMATOID ARTHRITIS
     Route: 058
     Dates: start: 20070913
  2. METHOTREXATE [Suspect]
     Indication: DRUG USE FOR UNKNOWN INDICATION

REACTIONS (12)
  - ALOPECIA [None]
  - CONDITION AGGRAVATED [None]
  - COUGH [None]
  - DYSPHONIA [None]
  - FATIGUE [None]
  - HYPERSENSITIVITY [None]
  - INFECTION [None]
  - PAIN [None]
  - POSTNASAL DRIP [None]
  - RESPIRATORY TRACT CONGESTION [None]
  - RHEUMATOID ARTHRITIS [None]
  - SINUS DISORDER [None]
